FAERS Safety Report 9373962 (Version 1)
Quarter: 2013Q2

REPORT INFORMATION
  Report Type: Spontaneous
  Country: US (occurrence: None)
  Receive Date: 20130627
  Receipt Date: 20130627
  Transmission Date: 20140414
  Serious: Yes (Death)
  Sender: FDA-Public Use
  Company Number: None

PATIENT
  Age: 37 Year
  Sex: Male

DRUGS (1)
  1. RISPERDAL CONSTA [Suspect]
     Indication: BIPOLAR DISORDER
     Dosage: 25MG  EVERY 14 DAYS  INTRAMUSCULAR
     Route: 030
     Dates: start: 20130418, end: 20130601

REACTIONS (1)
  - Cardiac disorder [None]
